FAERS Safety Report 6669067-4 (Version None)
Quarter: 2010Q2

REPORT INFORMATION
  Report Type: 
  Country: None (occurrence: None)
  Receive Date: 20100406
  Receipt Date: 20100331
  Transmission Date: 20101027
  Serious: Yes (Hospitalization)
  Sender: FDA-Public Use
  Company Number: US-SANOFI-AVENTIS-2010SA019166

PATIENT
  Age: 60 Year
  Sex: Male

DRUGS (8)
  1. PLAVIX [Suspect]
     Indication: STENT PLACEMENT
     Route: 048
     Dates: start: 20070112
  2. PLAVIX [Suspect]
     Route: 048
     Dates: start: 20070101
  3. PLAVIX [Suspect]
     Route: 048
     Dates: start: 20070101, end: 20080101
  4. PLAVIX [Suspect]
     Route: 048
     Dates: start: 20080101, end: 20080110
  5. ASPIRIN [Concomitant]
  6. LIPITOR [Concomitant]
  7. NIASPAN [Concomitant]
  8. METOPROLOL TARTRATE [Concomitant]

REACTIONS (5)
  - ASTHENIA [None]
  - DRUG RESISTANCE [None]
  - HAEMOPTYSIS [None]
  - OVERDOSE [None]
  - PULMONARY EMBOLISM [None]
